FAERS Safety Report 22195139 (Version 11)
Quarter: 2024Q2

REPORT INFORMATION
  Report Type: Report from Study
  Country: US (occurrence: US)
  Receive Date: 20230411
  Receipt Date: 20240510
  Transmission Date: 20240716
  Serious: Yes (Hospitalization)
  Sender: FDA-Public Use
  Company Number: US-ARGENX-2023-ARGX-US001075

PATIENT

DRUGS (2)
  1. VYVGART [Suspect]
     Active Substance: EFGARTIGIMOD ALFA-FCAB
     Indication: Myasthenia gravis
     Dosage: 10 MG/KG
     Route: 042
     Dates: start: 20230327
  2. CYANOCOBALAMIN [Suspect]
     Active Substance: CYANOCOBALAMIN
     Indication: Product used for unknown indication
     Dosage: INJECTION
     Route: 065

REACTIONS (27)
  - Malaise [Unknown]
  - Diarrhoea [Recovered/Resolved]
  - Nausea [Recovered/Resolved]
  - Dizziness [Recovered/Resolved]
  - Fall [Unknown]
  - Hip fracture [Unknown]
  - Eating disorder [Recovering/Resolving]
  - Dysphagia [Recovering/Resolving]
  - Weight decreased [Recovering/Resolving]
  - Rib fracture [Unknown]
  - Peripheral swelling [Unknown]
  - Diarrhoea [Unknown]
  - Sneezing [Unknown]
  - Cough [Unknown]
  - Lacrimation increased [Unknown]
  - Myalgia [Unknown]
  - Headache [Unknown]
  - Nasal congestion [Unknown]
  - COVID-19 [Unknown]
  - Oedema peripheral [Unknown]
  - Muscle tightness [Unknown]
  - Insomnia [Unknown]
  - Myasthenia gravis [Not Recovered/Not Resolved]
  - Dyspnoea [Unknown]
  - Herpes zoster [Unknown]
  - Musculoskeletal pain [Unknown]
  - Malaise [Unknown]

NARRATIVE: CASE EVENT DATE: 20230403
